FAERS Safety Report 13904665 (Version 1)
Quarter: 2017Q3

REPORT INFORMATION
  Report Type: Spontaneous
  Country: US (occurrence: US)
  Receive Date: 20170824
  Receipt Date: 20170824
  Transmission Date: 20171127
  Serious: No
  Sender: FDA-Public Use
  Company Number: None

PATIENT
  Age: 40 Year
  Sex: Female
  Weight: 55.35 kg

DRUGS (1)
  1. FASLODEX [Suspect]
     Active Substance: FULVESTRANT
     Indication: BREAST CANCER METASTATIC
     Dosage: ?          OTHER FREQUENCY:ONCE; ?
     Route: 030

REACTIONS (9)
  - Injection site reaction [None]
  - Injection site pain [None]
  - Dizziness [None]
  - Injection site erythema [None]
  - Injection site swelling [None]
  - Nausea [None]
  - Product contamination [None]
  - Injection site pruritus [None]
  - Injection site cellulitis [None]

NARRATIVE: CASE EVENT DATE: 20170724
